FAERS Safety Report 18376984 (Version 2)
Quarter: 2021Q1

REPORT INFORMATION
  Report Type: Report from Study
  Country: US (occurrence: US)
  Receive Date: 20201013
  Receipt Date: 20210101
  Transmission Date: 20210419
  Serious: Yes (Other)
  Sender: FDA-Public Use
  Company Number: US-MYLANLABS-2020M1070727

PATIENT
  Age: 24 Year
  Sex: Female
  Weight: 73 kg

DRUGS (3)
  1. WHISPERJECT? AUTOINJECTOR [Suspect]
     Active Substance: DEVICE
     Indication: RELAPSING-REMITTING MULTIPLE SCLEROSIS
     Dosage: UNK
  2. GLATIRAMER ACETATE INJECTION [Suspect]
     Active Substance: GLATIRAMER ACETATE
     Indication: RELAPSING-REMITTING MULTIPLE SCLEROSIS
     Dosage: 40 MILLIGRAM, 3XW (40MG THREE TIMES A WEEK)
     Route: 058
     Dates: start: 20200711
  3. GLATIRAMER ACETATE INJECTION [Suspect]
     Active Substance: GLATIRAMER ACETATE
     Dosage: UNK

REACTIONS (12)
  - Multiple sclerosis relapse [Recovering/Resolving]
  - Injection site urticaria [Unknown]
  - Musculoskeletal stiffness [Unknown]
  - Injection site erythema [Unknown]
  - Injection site mass [Unknown]
  - Injection site pain [Unknown]
  - Injection site bruising [Unknown]
  - Hypoaesthesia [Unknown]
  - Injection site discolouration [Unknown]
  - Wrong technique in product usage process [Unknown]
  - Visual impairment [Unknown]
  - Injection site extravasation [Unknown]

NARRATIVE: CASE EVENT DATE: 202008
